FAERS Safety Report 8016537-2 (Version None)
Quarter: 2011Q4

REPORT INFORMATION
  Report Type: 
  Country: None (occurrence: None)
  Receive Date: 20111230
  Receipt Date: 20111227
  Transmission Date: 20120403
  Serious: Yes (Hospitalization, Disabling)
  Sender: FDA-Public Use
  Company Number: US-MERCK-1106USA03365

PATIENT
  Sex: Female

DRUGS (9)
  1. ACTONEL [Suspect]
     Route: 048
     Dates: start: 20040301, end: 20050401
  2. ACTONEL [Suspect]
     Route: 048
     Dates: start: 20030301, end: 20040301
  3. CALCIUM (UNSPECIFIED) [Concomitant]
     Route: 065
     Dates: start: 19960101
  4. FOSAMAX [Suspect]
     Indication: OSTEOPENIA
     Route: 048
     Dates: start: 20050401, end: 20080501
  5. ACTONEL [Suspect]
     Route: 048
     Dates: start: 20011201, end: 20020301
  6. ACTONEL [Suspect]
     Route: 048
     Dates: start: 20020301, end: 20030301
  7. FOSAMAX [Suspect]
     Route: 048
     Dates: start: 20080501, end: 20100601
  8. ACTONEL [Suspect]
     Indication: OSTEOPENIA
     Route: 048
     Dates: start: 20010401, end: 20011201
  9. CENTRUM SILVER [Concomitant]
     Route: 065
     Dates: start: 20070101

REACTIONS (4)
  - TOOTH DISORDER [None]
  - LOW TURNOVER OSTEOPATHY [None]
  - FEMUR FRACTURE [None]
  - ASTHMA [None]
